FAERS Safety Report 6376459-X (Version None)
Quarter: 2009Q3

REPORT INFORMATION
  Report Type: 
  Country: None (occurrence: None)
  Receive Date: 20090922
  Receipt Date: 20090922
  Transmission Date: 20100115
  Serious: No
  Sender: FDA-Public Use
  Company Number: None

PATIENT
  Sex: Male
  Weight: 27.75 kg

DRUGS (2)
  1. DAYTRANA [Suspect]
     Indication: ATTENTION DEFICIT/HYPERACTIVITY DISORDER
     Dosage: 15 MG QD CUTANEOUS
     Route: 003
     Dates: start: 20080508, end: 20080514
  2. DAYTRANA [Suspect]
     Indication: AUTISM SPECTRUM DISORDER
     Dosage: 15 MG QD CUTANEOUS
     Route: 003
     Dates: start: 20080508, end: 20080514

REACTIONS (2)
  - CONDITION AGGRAVATED [None]
  - TIC [None]
